FAERS Safety Report 20170084 (Version 2)
Quarter: 2021Q4

REPORT INFORMATION
  Report Type: Spontaneous
  Country: US (occurrence: None)
  Receive Date: 20211210
  Receipt Date: 20211221
  Transmission Date: 20220303
  Serious: No
  Sender: FDA-Public Use
  Company Number: US-Eisai Medical Research-EC-2021-104326

PATIENT
  Age: 32 Year
  Sex: Female

DRUGS (3)
  1. FYCOMPA [Suspect]
     Active Substance: PERAMPANEL
     Indication: Seizure
     Dosage: DOSE AND FREQUENCY UNKNOWN
     Route: 048
     Dates: start: 2017, end: 201706
  2. FYCOMPA [Suspect]
     Active Substance: PERAMPANEL
     Route: 048
     Dates: start: 201706, end: 202111
  3. FYCOMPA [Suspect]
     Active Substance: PERAMPANEL
     Dosage: 4 MG IN AM/2 MG IN PM
     Route: 048
     Dates: start: 202111

REACTIONS (14)
  - Blood sodium decreased [Recovered/Resolved]
  - Rash [Not Recovered/Not Resolved]
  - Urticaria [Not Recovered/Not Resolved]
  - Confusional state [Recovered/Resolved]
  - Spinal fracture [Recovered/Resolved]
  - Ankle fracture [Recovered/Resolved]
  - Fall [Recovered/Resolved]
  - Contusion [Not Recovered/Not Resolved]
  - Weight fluctuation [Unknown]
  - Pharyngeal swelling [Not Recovered/Not Resolved]
  - Dry throat [Not Recovered/Not Resolved]
  - Dysphonia [Not Recovered/Not Resolved]
  - Headache [Not Recovered/Not Resolved]
  - Dyspnoea [Not Recovered/Not Resolved]

NARRATIVE: CASE EVENT DATE: 20180101
